FAERS Safety Report 18394118 (Version 2)
Quarter: 2020Q4

REPORT INFORMATION
  Report Type: Report from Study
  Country: US (occurrence: US)
  Receive Date: 20201017
  Receipt Date: 20201212
  Transmission Date: 20210114
  Serious: No
  Sender: FDA-Public Use
  Company Number: NVSC2020US279339

PATIENT
  Sex: Female

DRUGS (1)
  1. COSENTYX [Suspect]
     Active Substance: SECUKINUMAB
     Indication: PSORIASIS
     Dosage: 300 MG, Q4W (ONCE A WEEK FOR 5 WEEKS AND THEN Q 4)
     Route: 058

REACTIONS (3)
  - Injection site bruising [Unknown]
  - Drug ineffective [Not Recovered/Not Resolved]
  - Arthralgia [Unknown]
